FAERS Safety Report 23753556 (Version 2)
Quarter: 2024Q2

REPORT INFORMATION
  Report Type: Spontaneous
  Country: US (occurrence: US)
  Receive Date: 20240417
  Receipt Date: 20240520
  Transmission Date: 20240716
  Serious: No
  Sender: FDA-Public Use
  Company Number: US-BRISTOL-MYERS SQUIBB COMPANY-2024-060069

PATIENT
  Age: 65 Year
  Sex: Female
  Weight: 117.0 kg

DRUGS (1)
  1. LENALIDOMIDE [Suspect]
     Active Substance: LENALIDOMIDE
     Indication: Plasma cell myeloma
     Route: 048
     Dates: start: 20221026

REACTIONS (3)
  - Muscle spasms [Recovering/Resolving]
  - Bronchitis [Recovering/Resolving]
  - Chest pain [Recovering/Resolving]
